FAERS Safety Report 21989401 (Version 1)
Quarter: 2023Q1

REPORT INFORMATION
  Report Type: Spontaneous
  Country: US (occurrence: None)
  Receive Date: 20230213
  Receipt Date: 20230213
  Transmission Date: 20230418
  Serious: No
  Sender: FDA-Public Use
  Company Number: None

PATIENT
  Age: 75 Year
  Sex: Female
  Weight: 63.5 kg

DRUGS (1)
  1. METOPROLOL TARTRATE [Suspect]
     Active Substance: METOPROLOL TARTRATE
     Indication: Cardiac operation
     Dosage: FREQUENCY : TWICE A DAY;?
     Route: 048
     Dates: start: 20220513, end: 20221122

REACTIONS (7)
  - Muscular weakness [None]
  - Pain [None]
  - Heart rate decreased [None]
  - Blood pressure decreased [None]
  - Skin burning sensation [None]
  - Drug ineffective [None]
  - Product prescribing issue [None]

NARRATIVE: CASE EVENT DATE: 20220615
